FAERS Safety Report 6372383-7 (Version None)
Quarter: 2009Q3

REPORT INFORMATION
  Report Type: 
  Country: None (occurrence: None)
  Receive Date: 20090924
  Receipt Date: 20081021
  Transmission Date: 20100115
  Serious: No
  Sender: FDA-Public Use
  Company Number: US-ASTRAZENECA-2008UW21496

PATIENT
  Sex: Male
  Weight: 117.9 kg

DRUGS (5)
  1. SEROQUEL XR [Suspect]
     Indication: BIPOLAR I DISORDER
     Dosage: 300 MG FOR 8 WEEKS
     Route: 048
     Dates: start: 20080807, end: 20081001
  2. SEROQUEL XR [Suspect]
     Route: 048
     Dates: start: 20081001
  3. DEPAKOTE [Concomitant]
  4. FAMOTIDINE [Concomitant]
  5. TRAZODONE [Concomitant]

REACTIONS (6)
  - ABNORMAL DREAMS [None]
  - ASTHENIA [None]
  - COGNITIVE DISORDER [None]
  - DRY MOUTH [None]
  - FATIGUE [None]
  - MEMORY IMPAIRMENT [None]
